FAERS Safety Report 11525603 (Version 1)
Quarter: 2015Q3

REPORT INFORMATION
  Report Type: Spontaneous
  Country: US (occurrence: US)
  Receive Date: 20150918
  Receipt Date: 20150918
  Transmission Date: 20151125
  Serious: Yes (Disabling)
  Sender: FDA-Public Use
  Company Number: US-ACORDA-ACO_24497_2010

PATIENT
  Age: 69 Year
  Sex: Female
  Weight: 72 kg

DRUGS (4)
  1. AMPYRA [Suspect]
     Active Substance: DALFAMPRIDINE
     Indication: MULTIPLE SCLEROSIS
     Dosage: 10 MG, BID
     Route: 048
     Dates: start: 20100806, end: 20100807
  2. BABY ASPIRIN [Concomitant]
     Active Substance: ASPIRIN
     Dosage: DF
  3. FISH OIL [Concomitant]
     Active Substance: FISH OIL
     Dosage: DF
  4. CALTRATE [Concomitant]
     Active Substance: CALCIUM CARBONATE
     Dosage: DF

REACTIONS (4)
  - Condition aggravated [Recovering/Resolving]
  - Gait disturbance [Recovered/Resolved]
  - Movement disorder [Unknown]
  - Tremor [Recovering/Resolving]

NARRATIVE: CASE EVENT DATE: 20100807
